FAERS Safety Report 7647304-7 (Version None)
Quarter: 2011Q3

REPORT INFORMATION
  Report Type: 
  Country: None (occurrence: None)
  Receive Date: 20110801
  Receipt Date: 20110718
  Transmission Date: 20111222
  Serious: Yes (Hospitalization)
  Sender: FDA-Public Use
  Company Number: US-ENDO PHARMACEUTICALS INC.-ENDC20110145

PATIENT
  Sex: Female

DRUGS (4)
  1. VALIUM [Concomitant]
     Route: 065
  2. OXYCONTIN [Concomitant]
     Route: 065
  3. OXYCONTIN [Concomitant]
     Route: 065
  4. OXYCODONE AND ACETAMINOPHEN [Suspect]
     Indication: BACK PAIN
     Dosage: 10/325 MG
     Route: 048

REACTIONS (4)
  - GASTROENTERITIS VIRAL [None]
  - MALAISE [None]
  - ABDOMINAL PAIN UPPER [None]
  - RECTAL HAEMORRHAGE [None]
